FAERS Safety Report 21501846 (Version 1)
Quarter: 2022Q4

REPORT INFORMATION
  Report Type: Spontaneous
  Country: US (occurrence: US)
  Receive Date: 20221025
  Receipt Date: 20221025
  Transmission Date: 20230113
  Serious: No
  Sender: FDA-Public Use
  Company Number: US-BRISTOL-MYERS SQUIBB COMPANY-2022-124476

PATIENT
  Age: 77 Year
  Sex: Female
  Weight: 62.142 kg

DRUGS (2)
  1. ELIQUIS [Suspect]
     Active Substance: APIXABAN
     Indication: Deep vein thrombosis
     Dosage: DOSE : 5MG;     FREQ : TWICE PER DAY
     Route: 048
     Dates: start: 202208
  2. ASPIRIN [Suspect]
     Active Substance: ASPIRIN
     Indication: Product used for unknown indication
     Route: 065

REACTIONS (3)
  - Treatment noncompliance [Unknown]
  - Feeling abnormal [Unknown]
  - Mass [Unknown]

NARRATIVE: CASE EVENT DATE: 20220801
